FAERS Safety Report 7033254-6 (Version None)
Quarter: 2010Q4

REPORT INFORMATION
  Report Type: 
  Country: None (occurrence: None)
  Receive Date: 20101007
  Receipt Date: 20101005
  Transmission Date: 20110411
  Serious: Yes (Other)
  Sender: FDA-Public Use
  Company Number: A0764982A

PATIENT
  Age: 48 Year
  Sex: Male
  Weight: 109.1 kg

DRUGS (6)
  1. AVANDIA [Suspect]
     Dosage: 8MG PER DAY
     Route: 048
     Dates: start: 20020101, end: 20070101
  2. INSULIN [Concomitant]
  3. METFORMIN [Concomitant]
  4. AVALIDE [Concomitant]
  5. XALATAN [Concomitant]
  6. TIMOLOL MALEATE [Concomitant]

REACTIONS (3)
  - CEREBROVASCULAR ACCIDENT [None]
  - OEDEMA PERIPHERAL [None]
  - VISION BLURRED [None]
